FAERS Safety Report 6126116-X (Version None)
Quarter: 2009Q1

REPORT INFORMATION
  Report Type: 
  Country: None (occurrence: None)
  Receive Date: 20090320
  Receipt Date: 20090313
  Transmission Date: 20090719
  Serious: Yes (Hospitalization)
  Sender: FDA-Public Use
  Company Number: A0725149A

PATIENT
  Age: 51 Year
  Sex: Female
  Weight: 70.9 kg

DRUGS (2)
  1. AVANDIA [Suspect]
     Dosage: 2MG PER DAY
     Route: 065
     Dates: start: 20060421, end: 20060905
  2. AVANDAMET [Suspect]
     Dosage: 2MG PER DAY
     Route: 065
     Dates: start: 20040722, end: 20060223

REACTIONS (2)
  - HEART INJURY [None]
  - MYOCARDIAL INFARCTION [None]
